FAERS Safety Report 5400922-9 (Version None)
Quarter: 2007Q3

REPORT INFORMATION
  Report Type: 
  Country: None (occurrence: None)
  Receive Date: 20070730
  Receipt Date: 20061215
  Transmission Date: 20080115
  Serious: No
  Sender: FDA-Public Use
  Company Number: A0631750A

PATIENT
  Age: 6 Week
  Sex: Male
  Weight: 5 kg

DRUGS (2)
  1. ZANTAC 150 [Suspect]
     Dosage: .8ML UNKNOWN
     Route: 048
  2. NEOCATE (BABY FORMULA) [Concomitant]

REACTIONS (3)
  - ECZEMA [None]
  - HYPERSENSITIVITY [None]
  - RASH [None]
